FAERS Safety Report 7076596-0 (Version None)
Quarter: 2010Q4

REPORT INFORMATION
  Report Type: 
  Country: None (occurrence: None)
  Receive Date: 20101101
  Receipt Date: 20101025
  Transmission Date: 20110411
  Serious: Yes (Life-Threatening)
  Sender: FDA-Public Use
  Company Number: FR-PFIZER INC-2010135010

PATIENT
  Age: 37 Year
  Sex: Female

DRUGS (1)
  1. CHAMPIX [Suspect]
     Indication: SMOKING CESSATION THERAPY
     Dosage: 2 MG PER DAY
     Route: 048
     Dates: start: 20100703, end: 20100929

REACTIONS (4)
  - NAUSEA [None]
  - TACHYARRHYTHMIA [None]
  - VERTIGO [None]
  - VESTIBULAR DISORDER [None]
